FAERS Safety Report 22194060 (Version 2)
Quarter: 2023Q2

REPORT INFORMATION
  Report Type: Report from Study
  Country: JP (occurrence: JP)
  Receive Date: 20230411
  Receipt Date: 20230412
  Transmission Date: 20230721
  Serious: Yes (Hospitalization)
  Sender: FDA-Public Use
  Company Number: JP-ABBVIE-20K-087-3298823-00

PATIENT
  Age: 75 Year
  Sex: Female
  Weight: 44 kg

DRUGS (30)
  1. CARBIDOPA\LEVODOPA [Suspect]
     Active Substance: CARBIDOPA\LEVODOPA
     Indication: Parkinson^s disease
     Route: 050
     Dates: start: 20191211, end: 201912
  2. CARBIDOPA\LEVODOPA [Suspect]
     Active Substance: CARBIDOPA\LEVODOPA
     Dosage: MD: 9 ML?CD: 2 ML/HR ? 16 HRS?ED: 1.0 ML/UNIT ? 1
     Route: 050
     Dates: start: 20191212, end: 20191213
  3. CARBIDOPA\LEVODOPA [Suspect]
     Active Substance: CARBIDOPA\LEVODOPA
     Dosage: MD: 5 ML?CD: 2.6 ML/HR ? 16 HRS?ED: 1 ML/UNIT ? 1
     Route: 050
     Dates: start: 20191213, end: 20191214
  4. CARBIDOPA\LEVODOPA [Suspect]
     Active Substance: CARBIDOPA\LEVODOPA
     Dosage: MD: 5 ML?CD: 2.9 ML/HR ? 16 HRS?ED: 1 ML/UNIT ? 1
     Route: 050
     Dates: start: 20191214, end: 20191215
  5. CARBIDOPA\LEVODOPA [Suspect]
     Active Substance: CARBIDOPA\LEVODOPA
     Dosage: MD: 5 ML?CD: 3.2 ML/HR ? 16 HRS?ED: 1 ML/UNIT ? 1
     Route: 050
     Dates: start: 20191215, end: 20191216
  6. CARBIDOPA\LEVODOPA [Suspect]
     Active Substance: CARBIDOPA\LEVODOPA
     Dosage: MD: 5 ML?CD: 3.5 ML/HR ? 16 HRS?ED: 1 ML/UNIT ? 1
     Route: 050
     Dates: start: 20191216, end: 20191217
  7. CARBIDOPA\LEVODOPA [Suspect]
     Active Substance: CARBIDOPA\LEVODOPA
     Dosage: MD: 5 ML?CD: 3.8 ML/HR ? 16 HRS?ED: 1 ML/UNIT ? 1
     Route: 050
     Dates: start: 20191217, end: 20191219
  8. CARBIDOPA\LEVODOPA [Suspect]
     Active Substance: CARBIDOPA\LEVODOPA
     Dosage: MD: 5 ML?CD: 4.1 ML/HR ? 16 HRS?ED: 1 ML/UNIT ? 1
     Route: 050
     Dates: start: 20191219, end: 20191220
  9. CARBIDOPA\LEVODOPA [Suspect]
     Active Substance: CARBIDOPA\LEVODOPA
     Dosage: MD: 5 ML?CD: 4.4 ML/HR ? 16 HRS?ED: 1 ML/UNIT ? 1
     Route: 050
     Dates: start: 20191220, end: 20191231
  10. CARBIDOPA\LEVODOPA [Suspect]
     Active Substance: CARBIDOPA\LEVODOPA
     Dosage: MD: 5 ML?CD: 4.7 ML/HR ? 16 HRS?ED: 1.5 ML/UNIT ? 1
     Route: 050
     Dates: start: 20191231, end: 20200103
  11. CARBIDOPA\LEVODOPA [Suspect]
     Active Substance: CARBIDOPA\LEVODOPA
     Dosage: MD: 5 ML?CD: 5 ML/HR ? 16 HRS?ED: 1.5 ML/UNIT ? 1
     Route: 050
     Dates: start: 20200103, end: 20200109
  12. CARBIDOPA\LEVODOPA [Suspect]
     Active Substance: CARBIDOPA\LEVODOPA
     Dosage: MD: 5 ML?CD: 5.3 ML/HR ? 16 HRS?ED: 1.5 ML/UNIT ? 1
     Route: 050
     Dates: start: 20200109, end: 20200304
  13. CARBIDOPA\LEVODOPA [Suspect]
     Active Substance: CARBIDOPA\LEVODOPA
     Dosage: MD: 5 ML?CD: 5.1 ML/HR ? 16 HRS?ED: 1.5 ML/UNIT ? 1
     Route: 050
     Dates: start: 20200305, end: 20200506
  14. CARBIDOPA\LEVODOPA [Suspect]
     Active Substance: CARBIDOPA\LEVODOPA
     Dosage: MD: 7 ML?CD: 4.9 ML/HR ? 16 HRS?ED: 1.5 ML/UNIT ? 1
     Route: 050
     Dates: start: 20200507, end: 20200603
  15. CARBIDOPA\LEVODOPA [Suspect]
     Active Substance: CARBIDOPA\LEVODOPA
     Dosage: MD: 8 ML?CD: 4.7 ML/HR ? 16 HRS?ED: 1.5 ML/UNIT ? 1
     Route: 050
     Dates: start: 20200604, end: 20200701
  16. CARBIDOPA\LEVODOPA [Suspect]
     Active Substance: CARBIDOPA\LEVODOPA
     Dosage: MD: 8 ML?CD: 4.5 ML/HR ? 16 HRS?ED: 1.5 ML/UNIT ? 1
     Route: 050
     Dates: start: 20200702, end: 20200805
  17. CARBIDOPA\LEVODOPA [Suspect]
     Active Substance: CARBIDOPA\LEVODOPA
     Dosage: MD: 8 ML?CD: 4.0 ML/HR ? 16 HRS?ED: 1.5 ML/UNIT ? 1
     Route: 050
     Dates: start: 20200806, end: 20201118
  18. CARBIDOPA\LEVODOPA [Suspect]
     Active Substance: CARBIDOPA\LEVODOPA
     Dosage: MD: 8 ML?CD: 3.5 ML/HR ? 16 HRS?ED: 1.5 ML/UNIT ? 1
     Route: 050
     Dates: start: 20201119, end: 20210205
  19. CARBIDOPA\LEVODOPA [Suspect]
     Active Substance: CARBIDOPA\LEVODOPA
     Dosage: MD: 8 ML?CD: 3.8 ML/HR ? 16 HRS?ED: 1.5 ML/UNIT ? 1
     Route: 050
     Dates: start: 20210205, end: 20210527
  20. CARBIDOPA\LEVODOPA [Suspect]
     Active Substance: CARBIDOPA\LEVODOPA
     Dosage: MD: 8 ML?CD: 3.5 ML/HR ? 16 HRS?ED: 1.5 ML/UNIT ? 1
     Route: 050
     Dates: start: 20210205, end: 20210527
  21. CARBIDOPA\LEVODOPA [Suspect]
     Active Substance: CARBIDOPA\LEVODOPA
     Dosage: MD: 8 ML?CD: 3.0 ML/HR ? 16 HRS?ED: 1.5 ML/UNIT ? 1
     Route: 050
     Dates: start: 20210527, end: 20211007
  22. CARBIDOPA\LEVODOPA [Suspect]
     Active Substance: CARBIDOPA\LEVODOPA
     Dosage: MD: 8 ML?CD: 3.0 ML/HR ? 16 HRS?ED: 1.5 ML/UNIT ? 1
     Route: 050
     Dates: start: 20211007
  23. LEVODOPA [Concomitant]
     Active Substance: LEVODOPA
     Indication: Parkinson^s disease
     Route: 042
  24. LEVODOPA [Concomitant]
     Active Substance: LEVODOPA
     Indication: Parkinson^s disease
     Route: 042
     Dates: start: 20191211, end: 20191211
  25. LEVODOPA [Concomitant]
     Active Substance: LEVODOPA
     Indication: Parkinson^s disease
     Route: 042
     Dates: start: 20191225, end: 20191225
  26. ROTIGOTINE [Concomitant]
     Active Substance: ROTIGOTINE
     Indication: Parkinson^s disease
     Route: 062
     Dates: start: 20191211, end: 20191211
  27. ROTIGOTINE [Concomitant]
     Active Substance: ROTIGOTINE
     Indication: Parkinson^s disease
     Route: 062
     Dates: start: 20191212, end: 20191216
  28. ROTIGOTINE [Concomitant]
     Active Substance: ROTIGOTINE
     Indication: Parkinson^s disease
     Route: 062
     Dates: start: 20191217, end: 20191219
  29. ROTIGOTINE [Concomitant]
     Active Substance: ROTIGOTINE
     Indication: Parkinson^s disease
     Route: 062
     Dates: start: 20191220, end: 20191223
  30. ROTIGOTINE [Concomitant]
     Active Substance: ROTIGOTINE
     Indication: Parkinson^s disease
     Route: 062
     Dates: start: 20191224

REACTIONS (14)
  - Ileus [Unknown]
  - Stoma site pain [Not Recovered/Not Resolved]
  - Constipation [Unknown]
  - Stoma site reaction [Not Recovered/Not Resolved]
  - Stoma site extravasation [Unknown]
  - Malaise [Unknown]
  - Stoma site discharge [Not Recovered/Not Resolved]
  - Abdominal pain [Unknown]
  - Stoma site erythema [Not Recovered/Not Resolved]
  - Vomiting [Unknown]
  - Dizziness [Unknown]
  - Faecaloma [Unknown]
  - Speech disorder [Unknown]
  - Stoma site pain [Unknown]

NARRATIVE: CASE EVENT DATE: 20200219
